FAERS Safety Report 5900874-9 (Version None)
Quarter: 2008Q3

REPORT INFORMATION
  Report Type: 
  Country: None (occurrence: None)
  Receive Date: 20080929
  Receipt Date: 20080409
  Transmission Date: 20090109
  Serious: No
  Sender: FDA-Public Use
  Company Number: A0721867A

PATIENT
  Age: 41 Year
  Sex: Female

DRUGS (2)
  1. LAMOTRIGINE [Suspect]
     Dosage: 200MG TWICE PER DAY
     Route: 048
     Dates: start: 20070101
  2. BLOOD PRESSURE MEDICATION [Concomitant]

REACTIONS (3)
  - CRYING [None]
  - DEPRESSION [None]
  - PERSONALITY CHANGE [None]
